FAERS Safety Report 18647442 (Version 1)
Quarter: 2020Q4

REPORT INFORMATION
  Report Type: Report from Study
  Country: US (occurrence: US)
  Receive Date: 20201222
  Receipt Date: 20201222
  Transmission Date: 20210114
  Serious: Yes (Hospitalization, Other)
  Sender: FDA-Public Use
  Company Number: US-SA-2020SA354951

PATIENT

DRUGS (3)
  1. ALEMTUZUMAB [Suspect]
     Active Substance: ALEMTUZUMAB
     Dosage: 12 MG, QD
     Route: 042
     Dates: start: 20180508, end: 20180510
  2. ALEMTUZUMAB [Suspect]
     Active Substance: ALEMTUZUMAB
     Indication: MULTIPLE SCLEROSIS
     Dosage: 12 MG, QD
     Route: 042
     Dates: start: 20190624, end: 20190626
  3. ALEMTUZUMAB [Suspect]
     Active Substance: ALEMTUZUMAB
     Dosage: 12 MG, QD
     Route: 042
     Dates: start: 20170508, end: 20170512

REACTIONS (7)
  - Staphylococcal infection [Unknown]
  - Throat clearing [Unknown]
  - Rash [Unknown]
  - Thinking abnormal [Unknown]
  - Feeling abnormal [Unknown]
  - Nausea [Unknown]
  - Lip infection [Unknown]

NARRATIVE: CASE EVENT DATE: 2020
